FAERS Safety Report 6247152-9 (Version None)
Quarter: 2009Q2

REPORT INFORMATION
  Report Type: 
  Country: None (occurrence: None)
  Receive Date: 20090624
  Receipt Date: 20090624
  Transmission Date: 20091009
  Serious: No
  Sender: FDA-Public Use
  Company Number: None

PATIENT
  Age: 49 Year
  Sex: Male
  Weight: 77 kg

DRUGS (13)
  1. MIDAZOLAM HCL [Suspect]
     Indication: SEDATION
     Dosage: 2 MG IV X 1
     Route: 042
     Dates: start: 20090326
  2. ACYCLOVIR [Concomitant]
  3. UNASYN [Concomitant]
  4. FLUCONAZOLE [Concomitant]
  5. HYDROMORPHONE [Concomitant]
  6. INSULIN [Concomitant]
  7. LANSOPRAZOLE [Concomitant]
  8. LINEZOLID [Concomitant]
  9. MEROPENEM [Concomitant]
  10. METOPROLOL SUCCINATE [Concomitant]
  11. METRONIDAZOLE [Concomitant]
  12. PROCAINAMIDE [Concomitant]
  13. VANCOMYCIN [Concomitant]

REACTIONS (3)
  - HYPOTENSION [None]
  - SINUS TACHYCARDIA [None]
  - SOMNOLENCE [None]
